FAERS Safety Report 13369092 (Version 1)
Quarter: 2017Q1

REPORT INFORMATION
  Report Type: Spontaneous
  Country: BR (occurrence: BR)
  Receive Date: 20170324
  Receipt Date: 20170324
  Transmission Date: 20170429
  Serious: Yes (Other)
  Sender: FDA-Public Use
  Company Number: BR-009507513-1703BRA010869

PATIENT
  Age: 55 Year
  Sex: Male
  Weight: 82 kg

DRUGS (3)
  1. METICORTEN [Suspect]
     Active Substance: PREDNISONE
     Indication: SYSTEMIC LUPUS ERYTHEMATOSUS
     Dosage: 1 TABLET (5 MG) PER DAY
     Route: 048
     Dates: start: 2015
  2. LOSARTAN POTASSIUM. [Suspect]
     Active Substance: LOSARTAN POTASSIUM
     Indication: BLOOD PRESSURE ABNORMAL
     Dosage: 1 TABLET (50 MG) PER DAY
     Route: 048
     Dates: start: 2011
  3. METICORTEN [Suspect]
     Active Substance: PREDNISONE
     Indication: SYSTEMIC LUPUS ERYTHEMATOSUS
     Dosage: UNK
     Route: 048
     Dates: start: 2011

REACTIONS (3)
  - Dizziness [Not Recovered/Not Resolved]
  - Blindness [Not Recovered/Not Resolved]
  - Swelling [Recovered/Resolved]

NARRATIVE: CASE EVENT DATE: 2015
